FAERS Safety Report 22080301 (Version 2)
Quarter: 2023Q1

REPORT INFORMATION
  Report Type: Spontaneous
  Country: US (occurrence: US)
  Receive Date: 20230309
  Receipt Date: 20230317
  Transmission Date: 20230418
  Serious: Yes (Other)
  Sender: FDA-Public Use
  Company Number: US-PFIZER INC-PV202300007773

PATIENT
  Age: 75 Year
  Sex: Male

DRUGS (2)
  1. IBRANCE [Suspect]
     Active Substance: PALBOCICLIB
     Indication: Penile cancer
     Dosage: 125 MG, DAILY (CYCLE 21 ON 7 OFF)
  2. IBRANCE [Suspect]
     Active Substance: PALBOCICLIB
     Indication: Penile cancer

REACTIONS (2)
  - Urinary tract obstruction [Unknown]
  - Off label use [Unknown]
